FAERS Safety Report 15896570 (Version 5)
Quarter: 2019Q2

REPORT INFORMATION
  Report Type: Spontaneous
  Country: US (occurrence: US)
  Receive Date: 20190131
  Receipt Date: 20190513
  Transmission Date: 20190711
  Serious: Yes (Hospitalization)
  Sender: FDA-Public Use
  Company Number: US-ACTELION-A-NJ2019-185670

PATIENT
  Sex: Female
  Weight: 61.68 kg

DRUGS (2)
  1. VELETRI [Suspect]
     Active Substance: EPOPROSTENOL
     Indication: PULMONARY ARTERIAL HYPERTENSION
     Dosage: 28 NG/KG, PER MIN
     Route: 042
  2. OPSUMIT [Concomitant]
     Active Substance: MACITENTAN

REACTIONS (6)
  - Vomiting [Unknown]
  - Haematochezia [Unknown]
  - Abdominal pain [Unknown]
  - Nausea [Unknown]
  - Cholestasis [Unknown]
  - Blood potassium decreased [Unknown]
